FAERS Safety Report 5706800-X (Version None)
Quarter: 2008Q2

REPORT INFORMATION
  Report Type: 
  Country: None (occurrence: None)
  Receive Date: 20080415
  Receipt Date: 20080415
  Transmission Date: 20081010
  Serious: Yes (Other)
  Sender: FDA-Public Use
  Company Number: None

PATIENT
  Sex: Female
  Weight: 58.9676 kg

DRUGS (2)
  1. SINGULAIR [Suspect]
     Indication: ASTHMA
     Dosage: 10MG 1 A DAY PO
     Route: 048
     Dates: start: 20071015, end: 20071018
  2. SINGULAIR [Suspect]
     Indication: SEASONAL ALLERGY
     Dosage: 10MG 1 A DAY PO
     Route: 048
     Dates: start: 20071015, end: 20071018

REACTIONS (7)
  - CEREBRAL DISORDER [None]
  - DISTURBANCE IN ATTENTION [None]
  - DIZZINESS [None]
  - FEELING DRUNK [None]
  - HALLUCINATION [None]
  - MENTAL DISORDER [None]
  - THINKING ABNORMAL [None]
